FAERS Safety Report 18177079 (Version 1)
Quarter: 2020Q3

REPORT INFORMATION
  Report Type: Spontaneous
  Country: US (occurrence: US)
  Receive Date: 20200820
  Receipt Date: 20200820
  Transmission Date: 20201103
  Serious: No
  Sender: FDA-Public Use
  Company Number: US-AIMMUNE THERAPEUTICS, INC.-2020AIMT00232

PATIENT

DRUGS (3)
  1. PALFORZIA [Suspect]
     Active Substance: PEANUT
     Dosage: 3 MG
     Route: 048
     Dates: start: 202007, end: 202007
  2. PALFORZIA [Suspect]
     Active Substance: PEANUT
     Dosage: 6 MG
     Route: 048
     Dates: start: 202007, end: 202007
  3. PALFORZIA [Suspect]
     Active Substance: PEANUT
     Indication: FOOD ALLERGY
     Dosage: 3 MG
     Route: 048
     Dates: start: 202007, end: 202007

REACTIONS (3)
  - Throat clearing [Recovered/Resolved]
  - Product dose omission issue [Recovered/Resolved]
  - Throat irritation [Recovered/Resolved]

NARRATIVE: CASE EVENT DATE: 202007
